FAERS Safety Report 23423713 (Version 2)
Quarter: 2024Q1

REPORT INFORMATION
  Report Type: Spontaneous
  Country: JP (occurrence: JP)
  Receive Date: 20240119
  Receipt Date: 20240130
  Transmission Date: 20240409
  Serious: Yes (Death, Life-Threatening, Disabling, Other)
  Sender: FDA-Public Use
  Company Number: JP-SA-SAC20240115000914

PATIENT
  Age: 78 Year
  Sex: Female
  Weight: 56 kg

DRUGS (12)
  1. NICORANDIL [Suspect]
     Active Substance: NICORANDIL
     Indication: Product used for unknown indication
     Dosage: 2 ML
     Route: 041
     Dates: start: 20230607
  2. NICORANDIL [Suspect]
     Active Substance: NICORANDIL
     Dosage: UNK
     Route: 048
     Dates: start: 20230616
  3. DOCETAXEL [Suspect]
     Active Substance: DOCETAXEL\DOCETAXEL ANHYDROUS
     Indication: Breast cancer
     Dosage: 100 MG, Q3W
     Route: 041
     Dates: start: 20230314, end: 20230606
  4. TRASTUZUMAB [Suspect]
     Active Substance: TRASTUZUMAB
     Indication: Breast cancer
     Dosage: 580 MG, Q3W
     Route: 041
     Dates: start: 20230313, end: 20230313
  5. TRASTUZUMAB [Suspect]
     Active Substance: TRASTUZUMAB
     Dosage: 420 MG
     Route: 041
     Dates: start: 20230404, end: 20230516
  6. TRASTUZUMAB [Suspect]
     Active Substance: TRASTUZUMAB
     Dosage: 380 MG
     Route: 041
     Dates: start: 20230606, end: 20230606
  7. LENOGRASTIM [Suspect]
     Active Substance: LENOGRASTIM
     Indication: Febrile neutropenia
     Dosage: UNK
     Route: 065
     Dates: start: 20230613
  8. DEXAMETHASONE SODIUM PHOSPHATE [Concomitant]
     Active Substance: DEXAMETHASONE PHOSPHATE\DEXAMETHASONE SODIUM PHOSPHATE
     Indication: Product used for unknown indication
     Dosage: UNK
     Route: 065
     Dates: start: 20230314, end: 20230606
  9. MS TWICELON [Concomitant]
     Indication: Product used for unknown indication
     Dosage: UNK
     Route: 065
     Dates: start: 20230531
  10. DECADRON [Concomitant]
     Active Substance: DEXAMETHASONE
     Indication: Product used for unknown indication
     Dosage: UNK
     Route: 065
     Dates: start: 20230522
  11. ALPRAZOLAM [Concomitant]
     Active Substance: ALPRAZOLAM
     Indication: Product used for unknown indication
     Dosage: UNK
     Route: 065
     Dates: start: 20230525
  12. MORPHINE HYDROCHLORIDE [Concomitant]
     Active Substance: MORPHINE HYDROCHLORIDE
     Indication: Product used for unknown indication
     Dosage: UNK
     Route: 065
     Dates: start: 20230525

REACTIONS (5)
  - Disease progression [Fatal]
  - Respiratory arrest [Not Recovered/Not Resolved]
  - Cardiac arrest [Recovered/Resolved with Sequelae]
  - Febrile neutropenia [Recovered/Resolved]
  - Stress cardiomyopathy [Unknown]

NARRATIVE: CASE EVENT DATE: 20230606
